FAERS Safety Report 9752570 (Version 1)
Quarter: 2013Q4

REPORT INFORMATION
  Report Type: Spontaneous
  Country: FR (occurrence: FR)
  Receive Date: 20131213
  Receipt Date: 20131213
  Transmission Date: 20140711
  Serious: Yes (Death)
  Sender: FDA-Public Use
  Company Number: FR-UCBSA-105828

PATIENT
  Age: 33 Year
  Sex: Male
  Weight: 53 kg

DRUGS (16)
  1. KEPPRA [Suspect]
     Indication: EPILEPSY
     Dosage: 2 DF/DAY
     Route: 042
     Dates: start: 20130702, end: 20130716
  2. LOVENOX [Suspect]
     Dosage: 0.4 ML/DAY
     Route: 058
     Dates: start: 20130627, end: 20130715
  3. METHOTREXATE [Suspect]
     Indication: CENTRAL NERVOUS SYSTEM LYMPHOMA
     Dosage: 4800 MG, ONE TREATMENT CYCLE
     Route: 042
     Dates: start: 20130705, end: 20130711
  4. VIRAMUNE [Suspect]
     Indication: HIV TEST POSITIVE
     Dosage: 200 MG/DAY
     Route: 048
     Dates: start: 20130703, end: 20130716
  5. WELLVONE [Suspect]
     Indication: PNEUMOCYSTIS JIROVECII PNEUMONIA
     Dosage: 2 DF/DAY
     Route: 048
     Dates: start: 20130620, end: 20130716
  6. ZIAGEN [Concomitant]
     Indication: HIV TEST POSITIVE
     Dosage: 2 DF/DAY
     Route: 048
     Dates: start: 20130716, end: 20130716
  7. DIAMOX [Concomitant]
     Dosage: UNKNOWN DOSE
     Dates: start: 20130705
  8. CALCIUM FOLINATE [Concomitant]
     Dosage: UNKNOWN DOSE
     Route: 048
     Dates: start: 20130705, end: 20130716
  9. EPIVIR [Concomitant]
     Indication: HIV TEST POSITIVE
     Dosage: 300 MG/DAY
     Route: 048
     Dates: start: 20130703, end: 20130707
  10. CERNEVIT [Concomitant]
     Dosage: UNKNOWN DOSE
     Dates: start: 20130702
  11. SOLUMEDROL [Concomitant]
     Dosage: 60 MG/DAY
     Route: 042
     Dates: start: 20130702, end: 20130716
  12. CERUMENOL [Concomitant]
     Dosage: UNKNOWN DOSE
     Dates: start: 20130701
  13. FUNGIZONE [Concomitant]
     Dosage: UNKNOWN DOSE
     Dates: start: 20130624
  14. PARACETAMOL [Concomitant]
     Dosage: UNKNOWN DOSE
     Dates: start: 20130620
  15. ORACILLINE [Concomitant]
     Indication: STAPHYLOCOCCAL BACTERAEMIA
     Dosage: UNKNOWN DOSE
  16. KALETRA [Concomitant]
     Indication: HIV TEST POSITIVE
     Dosage: 2 DF/DAY
     Route: 048
     Dates: start: 20130625, end: 20130716

REACTIONS (5)
  - Anaemia [Fatal]
  - Thrombocytopenia [Fatal]
  - Leukopenia [Fatal]
  - Coma [Unknown]
  - Neurological decompensation [Unknown]
